FAERS Safety Report 21205759 (Version 5)
Quarter: 2023Q2

REPORT INFORMATION
  Report Type: Spontaneous
  Country: AU (occurrence: AU)
  Receive Date: 20220812
  Receipt Date: 20230508
  Transmission Date: 20230722
  Serious: Yes (Other)
  Sender: FDA-Public Use
  Company Number: AU-NOVARTISPH-NVSC2022AU180356

PATIENT
  Sex: Male

DRUGS (3)
  1. CYCLOSPORINE [Suspect]
     Active Substance: CYCLOSPORINE
     Indication: Acute graft versus host disease
     Dosage: UNK
     Route: 065
  2. METHYLPREDNISOLONE [Suspect]
     Active Substance: METHYLPREDNISOLONE
     Indication: Product used for unknown indication
     Dosage: UNK
     Route: 065
  3. PREDNISONE [Suspect]
     Active Substance: PREDNISONE
     Indication: Product used for unknown indication
     Dosage: UNK
     Route: 065

REACTIONS (10)
  - Acute graft versus host disease in skin [Recovered/Resolved]
  - Acute graft versus host disease in liver [Recovered/Resolved]
  - Acute graft versus host disease in intestine [Recovered/Resolved]
  - Bone marrow failure [Unknown]
  - Osteonecrosis [Unknown]
  - Congenital dyskeratosis [Unknown]
  - Osteopenia [Unknown]
  - Cushingoid [Unknown]
  - Myopathy [Unknown]
  - Therapy partial responder [Unknown]
